FAERS Safety Report 17032863 (Version 1)
Quarter: 2019Q4

REPORT INFORMATION
  Report Type: Spontaneous
  Country: US (occurrence: US)
  Receive Date: 20191114
  Receipt Date: 20191114
  Transmission Date: 20200122
  Serious: No
  Sender: FDA-Public Use
  Company Number: US-PFIZER INC-2019489674

PATIENT
  Age: 68 Year
  Sex: Female

DRUGS (5)
  1. IBRANCE [Suspect]
     Active Substance: PALBOCICLIB
     Indication: BREAST CANCER FEMALE
  2. IBRANCE [Suspect]
     Active Substance: PALBOCICLIB
     Indication: HUMAN EPIDERMAL GROWTH FACTOR RECEPTOR NEGATIVE
  3. IBRANCE [Suspect]
     Active Substance: PALBOCICLIB
     Indication: PROGESTERONE RECEPTOR ASSAY POSITIVE
  4. IBRANCE [Suspect]
     Active Substance: PALBOCICLIB
     Indication: INTRADUCTAL PROLIFERATIVE BREAST LESION
     Dosage: 125 MG, UNK
  5. IBRANCE [Suspect]
     Active Substance: PALBOCICLIB
     Indication: OESTROGEN RECEPTOR ASSAY POSITIVE

REACTIONS (1)
  - Neoplasm progression [Unknown]

NARRATIVE: CASE EVENT DATE: 20150914
